FAERS Safety Report 9842771 (Version 2)
Quarter: 2014Q1

REPORT INFORMATION
  Report Type: Spontaneous
  Country: US (occurrence: None)
  Receive Date: 20131223
  Receipt Date: 20140228
  Transmission Date: 20141002
  Serious: No
  Sender: FDA-Public Use
  Company Number: 222263LEO

PATIENT
  Age: 65 Year
  Sex: Male

DRUGS (1)
  1. PICATO (0.015%, GEL) [Suspect]
     Indication: PRECANCEROUS SKIN LESION
     Route: 061
     Dates: start: 20130604

REACTIONS (5)
  - Application site scab [None]
  - Application site exfoliation [None]
  - Application site swelling [None]
  - Application site pain [None]
  - Drug administered at inappropriate site [None]
